FAERS Safety Report 18086532 (Version 5)
Quarter: 2020Q4

REPORT INFORMATION
  Report Type: Report from Study
  Country: None (occurrence: US)
  Receive Date: 20200728
  Receipt Date: 20201023
  Transmission Date: 20210113
  Serious: Yes (Hospitalization, Other)
  Sender: FDA-Public Use
  Company Number: US-ABBVIE-20K-163-3378016-00

PATIENT
  Age: 60 Year
  Sex: Female

DRUGS (2)
  1. HUMIRA [Suspect]
     Active Substance: ADALIMUMAB
     Route: 058
     Dates: start: 20200421, end: 20200721
  2. HUMIRA [Suspect]
     Active Substance: ADALIMUMAB
     Indication: RHEUMATOID ARTHRITIS
     Dosage: CITRATE FREE
     Route: 058
     Dates: start: 20191015, end: 202008

REACTIONS (14)
  - Large intestinal obstruction [Recovering/Resolving]
  - Joint stiffness [Unknown]
  - Asthma [Recovering/Resolving]
  - Hospitalisation [Unknown]
  - Infection [Unknown]
  - Mobility decreased [Unknown]
  - Arthralgia [Not Recovered/Not Resolved]
  - Musculoskeletal stiffness [Not Recovered/Not Resolved]
  - Neck pain [Not Recovered/Not Resolved]
  - Unevaluable event [Unknown]
  - Peripancreatic fluid collection [Unknown]
  - Seasonal allergy [Recovering/Resolving]
  - Peripheral swelling [Unknown]
  - Pain in extremity [Unknown]

NARRATIVE: CASE EVENT DATE: 201910
